FAERS Safety Report 20804228 (Version 1)
Quarter: 2022Q2

REPORT INFORMATION
  Report Type: Spontaneous
  Country: US (occurrence: US)
  Receive Date: 20220509
  Receipt Date: 20220509
  Transmission Date: 20220721
  Serious: No
  Sender: FDA-Public Use
  Company Number: US-PFIZER INC-202200483804

PATIENT
  Age: 78 Year
  Sex: Female
  Weight: 64.399 kg

DRUGS (1)
  1. PREGABALIN [Suspect]
     Active Substance: PREGABALIN
     Indication: Restless legs syndrome
     Dosage: 50 MG, 1X/DAY
     Dates: start: 200804

REACTIONS (1)
  - Diarrhoea [Unknown]
